FAERS Safety Report 6841437-0 (Version None)
Quarter: 2010Q3

REPORT INFORMATION
  Report Type: 
  Country: None (occurrence: None)
  Receive Date: 20100714
  Receipt Date: 20070703
  Transmission Date: 20110219
  Serious: No
  Sender: FDA-Public Use
  Company Number: US-PFIZER INC-2007056014

PATIENT
  Sex: Female

DRUGS (4)
  1. CHANTIX [Suspect]
     Indication: SMOKING CESSATION THERAPY
     Dates: end: 20070601
  2. CARDIOVASCULAR SYSTEM DRUGS [Concomitant]
     Indication: BLOOD PRESSURE ABNORMAL
  3. ALL OTHER THERAPEUTIC PRODUCTS [Concomitant]
     Indication: BLOOD CHOLESTEROL ABNORMAL
  4. DRUG USED IN DIABETES [Concomitant]
     Indication: DIABETES MELLITUS

REACTIONS (1)
  - DYSGEUSIA [None]
